FAERS Safety Report 23696501 (Version 1)
Quarter: 2024Q2

REPORT INFORMATION
  Report Type: Spontaneous
  Country: IT (occurrence: IT)
  Receive Date: 20240402
  Receipt Date: 20240402
  Transmission Date: 20240715
  Serious: Yes (Other)
  Sender: FDA-Public Use
  Company Number: None

PATIENT
  Age: 50 Year
  Sex: Male
  Weight: 80 kg

DRUGS (3)
  1. CISPLATIN [Suspect]
     Active Substance: CISPLATIN
     Indication: Cholangiocarcinoma
     Dosage: G 1-8 Q 21 CISPLATIN 25 MG/M2 DT 40
     Route: 042
     Dates: start: 20240205, end: 20240205
  2. IMFINZI [Suspect]
     Active Substance: DURVALUMAB
     Indication: Cholangiocarcinoma
     Dosage: DURVALUMAB FLAT 1500 MG DT G 1-8 Q 21
     Route: 042
     Dates: start: 20240205, end: 20240205
  3. GEMCITABINE [Suspect]
     Active Substance: GEMCITABINE
     Indication: Cholangiocarcinoma
     Dosage: GEMCITABINE 1000 MG/M2 DT 2000 MG/M2
     Route: 042
     Dates: start: 20240205, end: 20240205

REACTIONS (1)
  - Anaemia [Recovered/Resolved]

NARRATIVE: CASE EVENT DATE: 20240209
